FAERS Safety Report 11222260 (Version 1)
Quarter: 2015Q2

REPORT INFORMATION
  Report Type: Spontaneous
  Country: US (occurrence: US)
  Receive Date: 20150626
  Receipt Date: 20150626
  Transmission Date: 20150821
  Serious: Yes (Life-Threatening, Hospitalization, Other)
  Sender: FDA-Public Use
  Company Number: US-009507513-1506USA012355

PATIENT
  Sex: Male
  Weight: 117.91 kg

DRUGS (1)
  1. JANUVIA [Suspect]
     Active Substance: SITAGLIPTIN PHOSPHATE
     Indication: TYPE 2 DIABETES MELLITUS
     Dosage: 100 MG, QD
     Route: 048
     Dates: start: 20101007, end: 20110706

REACTIONS (13)
  - Pancreaticoduodenectomy [Unknown]
  - Cholecystectomy [Unknown]
  - Umbilical hernia repair [Unknown]
  - Uvulectomy [Unknown]
  - Gallbladder disorder [Unknown]
  - Vertigo [Unknown]
  - Adenocarcinoma pancreas [Unknown]
  - Stent placement [Unknown]
  - Pancreatitis [Unknown]
  - Osteoarthritis [Unknown]
  - Sleep apnoea syndrome [Unknown]
  - Pruritus generalised [Unknown]
  - Coronary artery disease [Unknown]

NARRATIVE: CASE EVENT DATE: 2010
